FAERS Safety Report 10470388 (Version 1)
Quarter: 2014Q3

REPORT INFORMATION
  Report Type: Spontaneous
  Country: US (occurrence: None)
  Receive Date: 20140922
  Receipt Date: 20140922
  Transmission Date: 20150326
  Serious: Yes (Life-Threatening, Hospitalization)
  Sender: FDA-Public Use
  Company Number: None

PATIENT
  Age: 48 Year
  Sex: Male
  Weight: 90.72 kg

DRUGS (1)
  1. AZATHIOPRINE 50 MG ROXANE LABORATORIES [Suspect]
     Active Substance: AZATHIOPRINE
     Indication: CROHN^S DISEASE
     Route: 048
     Dates: start: 20140806, end: 20140909

REACTIONS (4)
  - Lung infection [None]
  - Respiratory failure [None]
  - Renal failure acute [None]
  - Sepsis [None]

NARRATIVE: CASE EVENT DATE: 20140810
